FAERS Safety Report 17728504 (Version 2)
Quarter: 2020Q2

REPORT INFORMATION
  Report Type: Spontaneous
  Country: US (occurrence: US)
  Receive Date: 20200430
  Receipt Date: 20200622
  Transmission Date: 20200714
  Serious: Yes (Other)
  Sender: FDA-Public Use
  Company Number: US-AKORN PHARMACEUTICALS-2020AKN00561

PATIENT
  Age: 26 Year
  Sex: Female

DRUGS (2)
  1. UNSPECIFIED BIRTH CONTROL PILLS [Concomitant]
     Active Substance: UNSPECIFIED INGREDIENT
  2. MYORISAN [Suspect]
     Active Substance: ISOTRETINOIN
     Dosage: 40 MG, 1X/DAY (AVERAGE DAILY DOSE: 40 MG)
     Dates: start: 20200225, end: 20200417

REACTIONS (4)
  - Abortion spontaneous [Recovered/Resolved]
  - Off label use [Recovered/Resolved]
  - Exposure during pregnancy [Recovered/Resolved]
  - Treatment noncompliance [Recovered/Resolved]

NARRATIVE: CASE EVENT DATE: 20200225
